FAERS Safety Report 25435395 (Version 1)
Quarter: 2025Q2

REPORT INFORMATION
  Report Type: Spontaneous
  Country: CA (occurrence: CA)
  Receive Date: 20250613
  Receipt Date: 20250613
  Transmission Date: 20250717
  Serious: Yes (Death, Other)
  Sender: BRISTOL-MYERS SQUIBB COMPANY
  Company Number: CA-BRISTOL-MYERS SQUIBB COMPANY-2025-084301

PATIENT
  Age: 44 Year
  Sex: Female

DRUGS (118)
  1. TRIAMCINOLONE ACETONIDE [Suspect]
     Active Substance: TRIAMCINOLONE ACETONIDE
     Indication: Rheumatoid arthritis
  2. ORENCIA [Suspect]
     Active Substance: ABATACEPT
     Indication: Rheumatoid arthritis
     Route: 058
  3. ORENCIA [Suspect]
     Active Substance: ABATACEPT
     Route: 058
  4. ORENCIA [Suspect]
     Active Substance: ABATACEPT
     Indication: Rheumatoid arthritis
     Route: 048
  5. ORENCIA [Suspect]
     Active Substance: ABATACEPT
  6. STELARA [Concomitant]
     Active Substance: USTEKINUMAB
     Indication: Psoriatic arthropathy
     Route: 058
  7. STELARA [Concomitant]
     Active Substance: USTEKINUMAB
     Route: 042
  8. FOSAPREPITANT DIMEGLUMINE [Concomitant]
     Active Substance: FOSAPREPITANT DIMEGLUMINE
     Indication: Product used for unknown indication
     Route: 048
  9. COSENTYX [Concomitant]
     Active Substance: SECUKINUMAB
     Indication: Rheumatoid arthritis
     Route: 005
  10. PREDNISONE [Concomitant]
     Active Substance: PREDNISONE
     Indication: Rheumatoid arthritis
  11. PREDNISONE [Concomitant]
     Active Substance: PREDNISONE
     Indication: Psoriatic arthropathy
     Route: 048
  12. PREDNISONE [Concomitant]
     Active Substance: PREDNISONE
     Indication: Condition aggravated
     Route: 048
  13. PREDNISONE [Concomitant]
     Active Substance: PREDNISONE
     Route: 042
  14. PREDNISONE [Concomitant]
     Active Substance: PREDNISONE
  15. PREDNISONE [Concomitant]
     Active Substance: PREDNISONE
     Route: 048
  16. GRAMICIDIN\NEOMYCIN SULFATE\POLYMYXIN B SULFATE [Concomitant]
     Active Substance: GRAMICIDIN\NEOMYCIN SULFATE\POLYMYXIN B SULFATE
     Indication: Product used for unknown indication
  17. CELECOXIB [Concomitant]
     Active Substance: CELECOXIB
     Indication: Product used for unknown indication
     Dosage: 1 EVERY 1 DAYS
  18. REMICADE [Concomitant]
     Active Substance: INFLIXIMAB
     Indication: Rheumatoid arthritis
     Route: 042
  19. REMICADE [Concomitant]
     Active Substance: INFLIXIMAB
     Route: 042
  20. INFLIXIMAB [Concomitant]
     Active Substance: INFLIXIMAB
     Indication: Rheumatoid arthritis
     Route: 042
  21. INFLIXIMAB [Concomitant]
     Active Substance: INFLIXIMAB
  22. ENBREL [Concomitant]
     Active Substance: ETANERCEPT
     Indication: Product used for unknown indication
     Route: 048
  23. ENBREL [Concomitant]
     Active Substance: ETANERCEPT
     Dosage: 1 EVERY 1 WEEKS
     Route: 058
  24. CHLORHEXIDINE GLUCONATE [Concomitant]
     Active Substance: CHLORHEXIDINE GLUCONATE
     Indication: Product used for unknown indication
     Route: 002
  25. ALENDRONIC ACID [Concomitant]
     Active Substance: ALENDRONIC ACID
     Indication: Rheumatoid arthritis
     Route: 048
  26. PREDNISONE [Concomitant]
     Active Substance: PREDNISONE
     Indication: Rheumatoid arthritis
     Route: 048
  27. SULFASALAZINE [Concomitant]
     Active Substance: SULFASALAZINE
     Indication: Rheumatoid arthritis
     Route: 048
  28. SULFASALAZINE [Concomitant]
     Active Substance: SULFASALAZINE
     Route: 048
  29. SULFASALAZINE [Concomitant]
     Active Substance: SULFASALAZINE
     Route: 048
  30. SULFASALAZINE [Concomitant]
     Active Substance: SULFASALAZINE
     Route: 048
  31. PSEUDOEPHEDRINE HYDROCHLORIDE [Concomitant]
     Active Substance: PSEUDOEPHEDRINE HYDROCHLORIDE
     Indication: Rheumatoid arthritis
  32. PSEUDOEPHEDRINE HYDROCHLORIDE [Concomitant]
     Active Substance: PSEUDOEPHEDRINE HYDROCHLORIDE
  33. OTEZLA [Concomitant]
     Active Substance: APREMILAST
     Indication: Product used for unknown indication
  34. MYCOPHENOLATE MOFETIL HYDROCHLORIDE [Concomitant]
     Active Substance: MYCOPHENOLATE MOFETIL HYDROCHLORIDE
     Indication: Product used for unknown indication
  35. LEFLUNOMIDE [Concomitant]
     Active Substance: LEFLUNOMIDE
     Indication: Rheumatoid arthritis
     Route: 048
  36. HYDROCORTISONE [Concomitant]
     Active Substance: HYDROCORTISONE
     Indication: Rheumatoid arthritis
     Route: 058
  37. HYDROCORTISONE [Concomitant]
     Active Substance: HYDROCORTISONE
     Route: 048
  38. CYANOCOBALAMIN\FOLIC ACID [Concomitant]
     Active Substance: CYANOCOBALAMIN\FOLIC ACID
     Indication: Product used for unknown indication
  39. DICLOFENAC POTASSIUM [Concomitant]
     Active Substance: DICLOFENAC POTASSIUM
     Indication: Product used for unknown indication
     Route: 058
  40. DICLOFENAC POTASSIUM [Concomitant]
     Active Substance: DICLOFENAC POTASSIUM
     Route: 048
  41. DICLOFENAC POTASSIUM [Concomitant]
     Active Substance: DICLOFENAC POTASSIUM
     Route: 058
  42. DICLOFENAC POTASSIUM [Concomitant]
     Active Substance: DICLOFENAC POTASSIUM
  43. CIMZIA [Concomitant]
     Active Substance: CERTOLIZUMAB PEGOL
     Indication: Rheumatoid arthritis
     Dosage: 1 EVERY 1 DAYS
     Route: 058
  44. CIMZIA [Concomitant]
     Active Substance: CERTOLIZUMAB PEGOL
     Route: 058
  45. CIMZIA [Concomitant]
     Active Substance: CERTOLIZUMAB PEGOL
  46. CHLORAPREP [Concomitant]
     Active Substance: CHLORHEXIDINE GLUCONATE\ISOPROPYL ALCOHOL
     Indication: Product used for unknown indication
     Route: 061
  47. ARAVA [Concomitant]
     Active Substance: LEFLUNOMIDE
     Indication: Rheumatoid arthritis
     Dosage: 1 EVERY 1 DAYS
     Route: 048
  48. ACTEMRA [Concomitant]
     Active Substance: TOCILIZUMAB
     Indication: Rheumatoid arthritis
     Route: 042
  49. ACTEMRA [Concomitant]
     Active Substance: TOCILIZUMAB
     Route: 042
  50. ACTEMRA [Concomitant]
     Active Substance: TOCILIZUMAB
     Route: 042
  51. ACTEMRA [Concomitant]
     Active Substance: TOCILIZUMAB
     Route: 042
  52. ACTEMRA [Concomitant]
     Active Substance: TOCILIZUMAB
     Route: 042
  53. XELJANZ [Concomitant]
     Active Substance: TOFACITINIB CITRATE
     Indication: Rheumatoid arthritis
     Route: 048
  54. XELJANZ [Concomitant]
     Active Substance: TOFACITINIB CITRATE
  55. XELJANZ [Concomitant]
     Active Substance: TOFACITINIB CITRATE
  56. SULFADIAZINE\SULFAMERAZINE\SULFATHIAZOLE [Concomitant]
     Active Substance: SULFADIAZINE\SULFAMERAZINE\SULFATHIAZOLE
     Indication: Rheumatoid arthritis
     Route: 048
  57. SULFADIAZINE\SULFAMERAZINE\SULFATHIAZOLE [Concomitant]
     Active Substance: SULFADIAZINE\SULFAMERAZINE\SULFATHIAZOLE
     Route: 016
  58. SULFADIAZINE\SULFAMERAZINE\SULFATHIAZOLE [Concomitant]
     Active Substance: SULFADIAZINE\SULFAMERAZINE\SULFATHIAZOLE
     Route: 048
  59. SULFADIAZINE\SULFAMERAZINE\SULFATHIAZOLE [Concomitant]
     Active Substance: SULFADIAZINE\SULFAMERAZINE\SULFATHIAZOLE
  60. SULFASALAZINE [Concomitant]
     Active Substance: SULFASALAZINE
     Indication: Product used for unknown indication
     Route: 048
  61. SULFASALAZINE [Concomitant]
     Active Substance: SULFASALAZINE
     Route: 048
  62. SULFASALAZINE [Concomitant]
     Active Substance: SULFASALAZINE
     Route: 048
  63. SULFASALAZINE [Concomitant]
     Active Substance: SULFASALAZINE
  64. SIMPONI [Concomitant]
     Active Substance: GOLIMUMAB
     Indication: Rheumatoid arthritis
     Route: 058
  65. RITUXIMAB [Concomitant]
     Active Substance: RITUXIMAB
     Indication: Rheumatoid arthritis
     Route: 042
  66. RITUXIMAB [Concomitant]
     Active Substance: RITUXIMAB
     Route: 058
  67. RITUXIMAB [Concomitant]
     Active Substance: RITUXIMAB
  68. CETIRIZINE HYDROCHLORIDE\PSEUDOEPHEDRINE HYDROCHLORIDE [Concomitant]
     Active Substance: CETIRIZINE HYDROCHLORIDE\PSEUDOEPHEDRINE HYDROCHLORIDE
     Indication: Rheumatoid arthritis
     Route: 048
  69. CETIRIZINE HYDROCHLORIDE\PSEUDOEPHEDRINE HYDROCHLORIDE [Concomitant]
     Active Substance: CETIRIZINE HYDROCHLORIDE\PSEUDOEPHEDRINE HYDROCHLORIDE
  70. PREGABALIN [Concomitant]
     Active Substance: PREGABALIN
     Indication: Product used for unknown indication
  71. PREGABALIN [Concomitant]
     Active Substance: PREGABALIN
  72. POLYMYXIN B SULFATE\TRIMETHOPRIM SULFATE [Concomitant]
     Active Substance: POLYMYXIN B SULFATE\TRIMETHOPRIM SULFATE
     Indication: Product used for unknown indication
  73. NAPROXEN SODIUM [Concomitant]
     Active Substance: NAPROXEN SODIUM
     Indication: Rheumatoid arthritis
  74. METHOTREXATE [Concomitant]
     Active Substance: METHOTREXATE
     Indication: Rheumatoid arthritis
     Route: 048
  75. METHOTREXATE [Concomitant]
     Active Substance: METHOTREXATE
  76. METHOTREXATE [Concomitant]
     Active Substance: METHOTREXATE
     Route: 048
  77. METHOTREXATE [Concomitant]
     Active Substance: METHOTREXATE
     Route: 048
  78. METHOTREXATE [Concomitant]
     Active Substance: METHOTREXATE
     Route: 013
  79. METHOTREXATE [Concomitant]
     Active Substance: METHOTREXATE
  80. CLIOQUINOL\FLUMETHASONE [Concomitant]
     Active Substance: CLIOQUINOL\FLUMETHASONE
     Indication: Rheumatoid arthritis
     Route: 058
  81. ISOPROPYL ALCOHOL [Concomitant]
     Active Substance: ISOPROPYL ALCOHOL
     Indication: Product used for unknown indication
  82. HYDROXYCHLOROQUINE SULFATE [Concomitant]
     Active Substance: HYDROXYCHLOROQUINE SULFATE
     Indication: Systemic lupus erythematosus
     Route: 048
  83. HYDROXYCHLOROQUINE SULFATE [Concomitant]
     Active Substance: HYDROXYCHLOROQUINE SULFATE
     Route: 048
  84. HYDROXYCHLOROQUINE SULFATE [Concomitant]
     Active Substance: HYDROXYCHLOROQUINE SULFATE
     Route: 058
  85. HYDROXYCHLOROQUINE SULFATE [Concomitant]
     Active Substance: HYDROXYCHLOROQUINE SULFATE
     Route: 058
  86. HYDROXYCHLOROQUINE SULFATE [Concomitant]
     Active Substance: HYDROXYCHLOROQUINE SULFATE
     Route: 048
  87. HUMIRA [Concomitant]
     Active Substance: ADALIMUMAB
     Indication: Rheumatoid arthritis
  88. HUMIRA [Concomitant]
     Active Substance: ADALIMUMAB
     Route: 058
  89. HUMIRA [Concomitant]
     Active Substance: ADALIMUMAB
     Route: 058
  90. FOSAMAX [Concomitant]
     Active Substance: ALENDRONATE SODIUM
     Indication: Rheumatoid arthritis
     Route: 048
  91. FOSAMAX [Concomitant]
     Active Substance: ALENDRONATE SODIUM
     Route: 048
  92. FOLIC ACID [Concomitant]
     Active Substance: FOLIC ACID
     Indication: Product used for unknown indication
  93. FOLIC ACID [Concomitant]
     Active Substance: FOLIC ACID
     Route: 048
  94. FOLIC ACID [Concomitant]
     Active Substance: FOLIC ACID
  95. FOLIC ACID [Concomitant]
     Active Substance: FOLIC ACID
     Route: 048
  96. FOLIC ACID [Concomitant]
     Active Substance: FOLIC ACID
  97. FOLIC ACID [Concomitant]
     Active Substance: FOLIC ACID
     Route: 048
  98. DOXYCYCLINE HYCLATE [Concomitant]
     Active Substance: DOXYCYCLINE HYCLATE
     Indication: Product used for unknown indication
  99. DESOXIMETASONE [Concomitant]
     Active Substance: DESOXIMETASONE
     Indication: Rheumatoid arthritis
     Route: 058
  100. DESOXIMETASONE [Concomitant]
     Active Substance: DESOXIMETASONE
     Route: 048
  101. DESOXIMETASONE [Concomitant]
     Active Substance: DESOXIMETASONE
     Route: 048
  102. DESOXIMETASONE [Concomitant]
     Active Substance: DESOXIMETASONE
     Route: 048
  103. DESOXIMETASONE [Concomitant]
     Active Substance: DESOXIMETASONE
     Route: 061
  104. CORTISONE [Concomitant]
     Active Substance: CORTISONE
     Indication: Rheumatoid arthritis
     Route: 061
  105. CHLORHEXIDINE [Concomitant]
     Active Substance: CHLORHEXIDINE
     Indication: Product used for unknown indication
     Route: 048
  106. CHLORHEXIDINE [Concomitant]
     Active Substance: CHLORHEXIDINE
     Route: 061
  107. CHLORHEXIDINE [Concomitant]
     Active Substance: CHLORHEXIDINE
     Route: 002
  108. CETIRIZINE [Concomitant]
     Active Substance: CETIRIZINE HYDROCHLORIDE
     Indication: Rheumatoid arthritis
     Dosage: 1 EVERY 1 DAYS
     Route: 048
  109. CETIRIZINE [Concomitant]
     Active Substance: CETIRIZINE HYDROCHLORIDE
     Indication: Off label use
     Route: 048
  110. CALCIUM CARBONATE [Concomitant]
     Active Substance: CALCIUM CARBONATE
     Indication: Product used for unknown indication
  111. PREDNISONE [Concomitant]
     Active Substance: PREDNISONE
     Indication: Rheumatoid arthritis
     Route: 048
  112. PREDNISONE [Concomitant]
     Active Substance: PREDNISONE
  113. ADALIMUMAB [Concomitant]
     Active Substance: ADALIMUMAB
     Indication: Psoriatic arthropathy
     Route: 058
  114. ACETAMINOPHEN\TRAMADOL [Concomitant]
     Active Substance: ACETAMINOPHEN\TRAMADOL
     Indication: Product used for unknown indication
  115. ACETAMINOPHEN [Concomitant]
     Active Substance: ACETAMINOPHEN
     Indication: Rheumatoid arthritis
  116. ACETAMINOPHEN [Concomitant]
     Active Substance: ACETAMINOPHEN
  117. COSENTYX [Concomitant]
     Active Substance: SECUKINUMAB
     Indication: Product used for unknown indication
  118. OXYCODONE [Concomitant]
     Active Substance: OXYCODONE
     Indication: Product used for unknown indication

REACTIONS (1)
  - Death [Fatal]
